FAERS Safety Report 25426086 (Version 1)
Quarter: 2025Q2

REPORT INFORMATION
  Report Type: Spontaneous
  Country: US (occurrence: US)
  Receive Date: 20250612
  Receipt Date: 20250612
  Transmission Date: 20250717
  Serious: No
  Sender: SANOFI AVENTIS
  Company Number: US-SA-2025SA165076

PATIENT
  Sex: Male
  Weight: 84.09 kg

DRUGS (5)
  1. DUPIXENT [Suspect]
     Active Substance: DUPILUMAB
     Indication: Dermatitis atopic
     Dosage: 300 MG, QOW
     Route: 058
  2. MIRABEGRON [Concomitant]
     Active Substance: MIRABEGRON
     Dosage: UNK UNK, QD
  3. MUPIROCIN [Concomitant]
     Active Substance: MUPIROCIN
  4. PIMECROLIMUS [Concomitant]
     Active Substance: PIMECROLIMUS
  5. TADALAFIL [Concomitant]
     Active Substance: TADALAFIL

REACTIONS (1)
  - Drug hypersensitivity [Unknown]
